FAERS Safety Report 14112932 (Version 2)
Quarter: 2017Q4

REPORT INFORMATION
  Report Type: Spontaneous
  Country: NZ (occurrence: NZ)
  Receive Date: 20171022
  Receipt Date: 20171024
  Transmission Date: 20180321
  Serious: Yes (Death, Other)
  Sender: FDA-Public Use
  Company Number: NZ-UCBSA-2017042102

PATIENT
  Age: 83 Year
  Sex: Male

DRUGS (1)
  1. NEUPRO [Suspect]
     Active Substance: ROTIGOTINE
     Indication: PRODUCT USED FOR UNKNOWN INDICATION
     Dosage: UNK

REACTIONS (5)
  - Choking [Unknown]
  - Diarrhoea [Unknown]
  - Death [Fatal]
  - Pneumonia aspiration [Unknown]
  - Vomiting [Unknown]
